FAERS Safety Report 17776213 (Version 1)
Quarter: 2020Q2

REPORT INFORMATION
  Report Type: Spontaneous
  Country: US (occurrence: US)
  Receive Date: 20200513
  Receipt Date: 20200513
  Transmission Date: 20200714
  Serious: No
  Sender: FDA-Public Use
  Company Number: US-TEVA-2020-US-1232384

PATIENT
  Age: 64 Year
  Sex: Female

DRUGS (1)
  1. TIAGABINE HYDROCHLORIDE TEVA [Suspect]
     Active Substance: TIAGABINE HYDROCHLORIDE
     Indication: ANXIETY

REACTIONS (3)
  - Product use in unapproved indication [Unknown]
  - Therapeutic product effect incomplete [Unknown]
  - Drug screen positive [Unknown]
